FAERS Safety Report 5568715-X (Version None)
Quarter: 2007Q4

REPORT INFORMATION
  Report Type: 
  Country: None (occurrence: None)
  Receive Date: 20071220
  Receipt Date: 20061127
  Transmission Date: 20080405
  Serious: No
  Sender: FDA-Public Use
  Company Number: A0628703A

PATIENT
  Age: 66 Year
  Sex: Male

DRUGS (4)
  1. AVODART [Suspect]
     Indication: BENIGN PROSTATIC HYPERPLASIA
     Dosage: .5MG PER DAY
     Route: 048
     Dates: start: 20060101, end: 20060601
  2. DOXAZOSIN MESYLATE [Concomitant]
  3. SULAR [Concomitant]
  4. AMILORIDE HYDROCHLORIDE [Concomitant]

REACTIONS (1)
  - DRUG INEFFECTIVE [None]
